FAERS Safety Report 5266052-4 (Version None)
Quarter: 2007Q1

REPORT INFORMATION
  Report Type: 
  Country: None (occurrence: None)
  Receive Date: 20070315
  Receipt Date: 20070301
  Transmission Date: 20070707
  Serious: Yes (Other)
  Sender: FDA-Public Use
  Company Number: PHBS2007US03936

PATIENT
  Age: 57 Year
  Sex: Male

DRUGS (7)
  1. RITALIN [Suspect]
     Indication: DISTURBANCE IN ATTENTION
  2. VENLAFAXINE HCL [Concomitant]
     Indication: DEPRESSION
  3. OMEPRAZOLE [Concomitant]
  4. HYDROCHLOROTHIAZIDE [Concomitant]
  5. FOSINOPRIL SODIUM [Concomitant]
  6. MULTI-VITAMINS [Concomitant]
  7. CYCLOSPORINE [Concomitant]

REACTIONS (8)
  - ALANINE AMINOTRANSFERASE INCREASED [None]
  - ANTINUCLEAR ANTIBODY POSITIVE [None]
  - ASPARTATE AMINOTRANSFERASE INCREASED [None]
  - AUTOIMMUNE HEPATITIS [None]
  - BIOPSY LIVER [None]
  - BLOOD BILIRUBIN INCREASED [None]
  - BLOOD IMMUNOGLOBULIN G INCREASED [None]
  - HEPATIC INFILTRATION EOSINOPHILIC [None]
